FAERS Safety Report 15214111 (Version 2)
Quarter: 2018Q3

REPORT INFORMATION
  Report Type: Spontaneous
  Country: US (occurrence: US)
  Receive Date: 20180730
  Receipt Date: 20180806
  Transmission Date: 20181010
  Serious: No
  Sender: FDA-Public Use
  Company Number: US-SA-2018SA206453

PATIENT
  Sex: Female

DRUGS (3)
  1. TYLENOL PM [Suspect]
     Active Substance: ACETAMINOPHEN\DIPHENHYDRAMINE
     Dosage: UNK UNK, UNK
     Route: 065
  2. UNISOM SLEEPTABS [Suspect]
     Active Substance: DOXYLAMINE SUCCINATE
  3. EXCEDRIN PM [Suspect]
     Active Substance: ACETAMINOPHEN\DIPHENHYDRAMINE\DIPHENHYDRAMINE CITRATE
     Dosage: UNK UNK, UNK
     Route: 065

REACTIONS (1)
  - Drug ineffective [Unknown]
